FAERS Safety Report 15496215 (Version 1)
Quarter: 2018Q4

REPORT INFORMATION
  Report Type: Spontaneous
  Country: FR (occurrence: FR)
  Receive Date: 20181012
  Receipt Date: 20181012
  Transmission Date: 20190205
  Serious: Yes (Other)
  Sender: FDA-Public Use
  Company Number: FR-B.I. PHARMACEUTICALS,INC./RIDGEFIELD-2018-12-003371

PATIENT
  Age: 66 Year
  Sex: Female

DRUGS (3)
  1. SPIRIVA [Suspect]
     Active Substance: TIOTROPIUM BROMIDE MONOHYDRATE
     Indication: ASTHMA
     Dosage: SOLUTION POUR INHALATION
     Route: 055
     Dates: start: 2018, end: 2018
  2. SINGULAIR [Concomitant]
     Active Substance: MONTELUKAST SODIUM
     Indication: ASTHMA
     Dosage: COMPRIME PELLICULE
     Route: 055
  3. ALVESCO [Concomitant]
     Active Substance: CICLESONIDE
     Indication: ASTHMA
     Route: 055

REACTIONS (2)
  - Foreign body aspiration [Recovered/Resolved]
  - Suffocation feeling [Recovered/Resolved]

NARRATIVE: CASE EVENT DATE: 2018
